FAERS Safety Report 15719836 (Version 1)
Quarter: 2018Q4

REPORT INFORMATION
  Report Type: Spontaneous
  Country: JP (occurrence: JP)
  Receive Date: 20181213
  Receipt Date: 20181213
  Transmission Date: 20190205
  Serious: Yes (Life-Threatening, Hospitalization)
  Sender: FDA-Public Use
  Company Number: JP-MYLANLABS-2018M1092263

PATIENT
  Age: 78 Year
  Sex: Male

DRUGS (17)
  1. EPINEPHRINE. [Suspect]
     Active Substance: EPINEPHRINE
     Indication: SHOCK HAEMORRHAGIC
     Dosage: 2 BOLUS INJECTIONS
     Route: 050
  2. REMIFENTANIL [Concomitant]
     Active Substance: REMIFENTANIL
     Dosage: 2 INFUSIONS
     Route: 050
  3. REMIFENTANIL [Concomitant]
     Active Substance: REMIFENTANIL
     Dosage: 1 INFUSION
     Route: 050
  4. PHENYLEPHRINE [Suspect]
     Active Substance: PHENYLEPHRINE\PHENYLEPHRINE HYDROCHLORIDE
     Indication: SHOCK HAEMORRHAGIC
     Dosage: 2 BOLUS INJECTIONS
     Route: 050
  5. PROPOFOL. [Concomitant]
     Active Substance: PROPOFOL
     Dosage: TARGET CONTROLLED INFUSION: 1.0 MICROG/ML (2 TIMES)
     Route: 050
  6. NOREPINEPHRINE. [Suspect]
     Active Substance: NOREPINEPHRINE
     Dosage: 1 BOLUS INJECITON
     Route: 050
  7. PHENYLEPHRINE [Suspect]
     Active Substance: PHENYLEPHRINE\PHENYLEPHRINE HYDROCHLORIDE
     Dosage: 3 BOLUS INJECTIONS
     Route: 050
  8. REMIFENTANIL [Concomitant]
     Active Substance: REMIFENTANIL
     Dosage: 1 INFUSION
     Route: 050
  9. NOREPINEPHRINE. [Suspect]
     Active Substance: NOREPINEPHRINE
     Indication: SHOCK HAEMORRHAGIC
     Dosage: 2 BOLUS INJECTIONS
     Route: 050
  10. PROPOFOL. [Concomitant]
     Active Substance: PROPOFOL
     Dosage: TARGET CONTROLLED INFUSION: 2.0 MICROG/ML
     Route: 050
  11. NOREPINEPHRINE. [Suspect]
     Active Substance: NOREPINEPHRINE
     Dosage: 1 BOLUS INJECTION
     Route: 050
  12. ROCURONIUM [Concomitant]
     Active Substance: ROCURONIUM BROMIDE
     Indication: INDUCTION OF ANAESTHESIA
     Route: 065
  13. NOREPINEPHRINE. [Suspect]
     Active Substance: NOREPINEPHRINE
     Dosage: 1 BOLUS INJECTION
     Route: 050
  14. PROPOFOL. [Concomitant]
     Active Substance: PROPOFOL
     Indication: INDUCTION AND MAINTENANCE OF ANAESTHESIA
     Dosage: TARGET CONTROLLED INFUSION: 3.0 MICROG/ML
     Route: 050
  15. PROPOFOL. [Concomitant]
     Active Substance: PROPOFOL
     Dosage: TARGET CONTROLLED INFUSION: 1.5 MICROG/ML
     Route: 050
  16. REMIFENTANIL [Concomitant]
     Active Substance: REMIFENTANIL
     Indication: INDUCTION AND MAINTENANCE OF ANAESTHESIA
     Dosage: 3 INFUSIONS
     Route: 050
  17. FENTANYL. [Concomitant]
     Active Substance: FENTANYL
     Indication: INDUCTION OF ANAESTHESIA
     Route: 065

REACTIONS (1)
  - Drug ineffective [Unknown]
